FAERS Safety Report 16265793 (Version 1)
Quarter: 2019Q2

REPORT INFORMATION
  Report Type: Spontaneous
  Country: US (occurrence: US)
  Receive Date: 20190328
  Receipt Date: 20190328
  Transmission Date: 20190711
  Serious: Yes (Hospitalization)
  Sender: FDA-Public Use
  Company Number: None

PATIENT
  Sex: Female

DRUGS (9)
  1. ONDANSETRON [Concomitant]
     Active Substance: ONDANSETRON
  2. PHENAZOPYRID [Concomitant]
  3. IBU [Concomitant]
     Active Substance: IBUPROFEN
  4. CEFDINIR. [Concomitant]
     Active Substance: CEFDINIR
  5. PREDNISONE. [Concomitant]
     Active Substance: PREDNISONE
  6. DICYCLOMINE [Concomitant]
     Active Substance: DICYCLOMINE HYDROCHLORIDE
  7. METHYLPRED [Concomitant]
     Active Substance: METHYLPREDNISOLONE
  8. HUMIRA [Suspect]
     Active Substance: ADALIMUMAB
     Indication: COLITIS
     Route: 058
     Dates: start: 20171227
  9. CYCLOBENZAPR [Concomitant]
     Active Substance: CYCLOBENZAPRINE

REACTIONS (1)
  - Product dose omission [None]
